FAERS Safety Report 16578981 (Version 2)
Quarter: 2019Q3

REPORT INFORMATION
  Report Type: Report from Study
  Country: DE (occurrence: DE)
  Receive Date: 20190716
  Receipt Date: 20190722
  Transmission Date: 20191004
  Serious: Yes (Death, Hospitalization, Other)
  Sender: FDA-Public Use
  Company Number: DE-MYLANLABS-2019M1066579

PATIENT
  Age: 60 Year
  Sex: Male

DRUGS (4)
  1. METHOTREXATE. [Suspect]
     Active Substance: METHOTREXATE
     Indication: RHEUMATOID ARTHRITIS
     Dosage: 20 MILLIGRAM
     Route: 065
     Dates: start: 201611
  2. TOCILIZUMAB. [Suspect]
     Active Substance: TOCILIZUMAB
     Dosage: 520 MILLIGRAM
     Route: 065
     Dates: start: 201409
  3. METHOTREXATE. [Suspect]
     Active Substance: METHOTREXATE
     Dosage: 25 MILLIGRAM
     Route: 065
  4. TOCILIZUMAB. [Suspect]
     Active Substance: TOCILIZUMAB
     Indication: RHEUMATOID ARTHRITIS
     Dosage: 720 MILLIGRAM
     Route: 065
     Dates: end: 20161110

REACTIONS (10)
  - Decubitus ulcer [Unknown]
  - Urinary tract infection bacterial [Unknown]
  - Portal vein thrombosis [Unknown]
  - Staphylococcal sepsis [Fatal]
  - Pancytopenia [Unknown]
  - Pancreatic calcification [Unknown]
  - Multiple organ dysfunction syndrome [Fatal]
  - Paraplegia [Unknown]
  - Septic shock [Fatal]
  - Pulmonary tuberculosis [Unknown]

NARRATIVE: CASE EVENT DATE: 201612
